FAERS Safety Report 7671748-0 (Version None)
Quarter: 2011Q3

REPORT INFORMATION
  Report Type: 
  Country: None (occurrence: None)
  Receive Date: 20110809
  Receipt Date: 20110728
  Transmission Date: 20111222
  Serious: Yes (Death)
  Sender: FDA-Public Use
  Company Number: JP-PFIZER INC-2011177923

PATIENT
  Age: 84 Year
  Weight: 30.4 kg

DRUGS (6)
  1. LEVOFLOXACIN [Concomitant]
     Indication: MYCOBACTERIUM AVIUM COMPLEX INFECTION
     Dosage: 250 MG, 1X/DAY
     Route: 048
  2. ZOLPIDEM [Concomitant]
     Dosage: 5 MG, 1X/DAY
     Route: 048
  3. ZITHROMAX [Concomitant]
     Indication: MYCOBACTERIUM AVIUM COMPLEX INFECTION
     Dosage: 2 G, WEEKLY
     Route: 048
  4. RIFABUTIN [Suspect]
     Dosage: 150 MG, 1X/DAY
     Route: 048
     Dates: start: 20101123
  5. FAMOTIDINE [Concomitant]
     Dosage: 40 MG, UNK
     Route: 048
  6. PURSENNID [Concomitant]
     Dosage: 12 MG, 1X/DAY
     Route: 048

REACTIONS (1)
  - DEATH [None]
